FAERS Safety Report 21172743 (Version 7)
Quarter: 2024Q1

REPORT INFORMATION
  Report Type: Spontaneous
  Country: US (occurrence: US)
  Receive Date: 20220804
  Receipt Date: 20240202
  Transmission Date: 20240409
  Serious: Yes (Hospitalization, Other)
  Sender: FDA-Public Use
  Company Number: US-Blueprint Medicines Corporation-312

PATIENT
  Age: 70 Year
  Sex: Female
  Weight: 66.738 kg

DRUGS (92)
  1. AYVAKIT [Suspect]
     Active Substance: AVAPRITINIB
     Indication: Haematopoietic neoplasm
     Route: 048
     Dates: start: 20211007
  2. AYVAKIT [Suspect]
     Active Substance: AVAPRITINIB
     Indication: Systemic mastocytosis
     Route: 065
     Dates: start: 20210702
  3. AYVAKIT [Suspect]
     Active Substance: AVAPRITINIB
     Indication: Mastocytosis
     Route: 065
     Dates: start: 20210929
  4. AYVAKIT [Suspect]
     Active Substance: AVAPRITINIB
     Route: 048
     Dates: start: 20220320
  5. AYVAKIT [Suspect]
     Active Substance: AVAPRITINIB
     Route: 065
     Dates: start: 20210929
  6. AYVAKIT [Suspect]
     Active Substance: AVAPRITINIB
     Route: 065
     Dates: start: 20211007
  7. AYVAKIT [Suspect]
     Active Substance: AVAPRITINIB
     Route: 065
     Dates: start: 20211007
  8. AYVAKIT [Suspect]
     Active Substance: AVAPRITINIB
     Route: 048
  9. AYVAKIT [Suspect]
     Active Substance: AVAPRITINIB
     Route: 065
     Dates: start: 20230927
  10. AYVAKIT [Suspect]
     Active Substance: AVAPRITINIB
     Route: 065
  11. AYVAKIT [Suspect]
     Active Substance: AVAPRITINIB
     Route: 065
     Dates: start: 20210929, end: 20230915
  12. AYVAKIT [Suspect]
     Active Substance: AVAPRITINIB
     Route: 065
     Dates: start: 20230526, end: 20231207
  13. AYVAKIT [Suspect]
     Active Substance: AVAPRITINIB
     Route: 065
     Dates: start: 20231208
  14. AYVAKIT [Suspect]
     Active Substance: AVAPRITINIB
     Route: 065
     Dates: start: 20230309, end: 20230525
  15. AYVAKIT [Suspect]
     Active Substance: AVAPRITINIB
     Route: 065
     Dates: start: 20211011, end: 20220113
  16. ASPIRIN [Concomitant]
     Active Substance: ASPIRIN
     Indication: Product used for unknown indication
     Route: 048
  17. LIPITOR [Concomitant]
     Active Substance: ATORVASTATIN CALCIUM
     Indication: Product used for unknown indication
     Route: 048
  18. Dulcolax [Concomitant]
     Indication: Constipation
     Route: 048
  19. Dulcolax [Concomitant]
     Route: 048
  20. PERIDEX [Concomitant]
     Active Substance: CHLORHEXIDINE GLUCONATE
     Indication: Product used for unknown indication
     Dosage: 15ML
     Route: 048
  21. PERIDEX [Concomitant]
     Active Substance: CHLORHEXIDINE GLUCONATE
     Dosage: 15ML FOR 30 SECONDS
     Route: 048
  22. VITAMIN D3 [Concomitant]
     Active Substance: CHOLECALCIFEROL
     Indication: Product used for unknown indication
     Dosage: 1000 UNITS
     Route: 048
  23. FLEXERIL [Concomitant]
     Active Substance: CYCLOBENZAPRINE HYDROCHLORIDE
     Indication: Product used for unknown indication
     Dosage: TAKE 2 TABLETS BY MOUTH AT BEDTIME AS NEEDED
     Route: 048
  24. RESTASIS [Concomitant]
     Active Substance: CYCLOSPORINE
     Indication: Product used for unknown indication
     Route: 047
  25. BION TEARS [Concomitant]
     Active Substance: DEXTRAN 70\HYPROMELLOSE 2910 (4000 MPA.S)
     Indication: Product used for unknown indication
     Route: 065
  26. VOLTAREN [Concomitant]
     Active Substance: DICLOFENAC SODIUM
     Indication: Product used for unknown indication
     Route: 061
  27. EPIPEN [Concomitant]
     Active Substance: EPINEPHRINE
     Indication: Anaphylactic reaction
     Dosage: 1 PEN, INTO THIGH IF NEEDED FOR ANAPHYLACTIC REACTION. REPEAT IN 5-15 MINUTES IF NEEDED
  28. NEXIUM [Concomitant]
     Active Substance: ESOMEPRAZOLE MAGNESIUM
     Indication: Product used for unknown indication
     Route: 048
  29. LOFIBRA [Concomitant]
     Active Substance: FENOFIBRATE
     Indication: Product used for unknown indication
     Route: 048
  30. ALLEGRA [Concomitant]
     Active Substance: FEXOFENADINE HYDROCHLORIDE
     Indication: Product used for unknown indication
     Route: 048
  31. ALLEGRA [Concomitant]
     Active Substance: FEXOFENADINE HYDROCHLORIDE
     Route: 048
  32. FLONASE [Concomitant]
     Active Substance: FLUTICASONE PROPIONATE
     Indication: Product used for unknown indication
     Route: 045
  33. EXALGO [Concomitant]
     Active Substance: HYDROMORPHONE HYDROCHLORIDE
     Indication: Pain
     Route: 065
  34. EXALGO [Concomitant]
     Active Substance: HYDROMORPHONE HYDROCHLORIDE
     Route: 048
  35. ATARAX [Concomitant]
     Active Substance: HYDROXYZINE HYDROCHLORIDE
     Indication: Product used for unknown indication
     Route: 048
  36. ATARAX [Concomitant]
     Active Substance: HYDROXYZINE HYDROCHLORIDE
     Route: 065
  37. SYNTHROID [Concomitant]
     Active Substance: LEVOTHYROXINE SODIUM
     Indication: Product used for unknown indication
     Route: 065
  38. REGLAN [Concomitant]
     Active Substance: METOCLOPRAMIDE HYDROCHLORIDE
     Indication: Nausea
     Route: 048
  39. REGLAN [Concomitant]
     Active Substance: METOCLOPRAMIDE HYDROCHLORIDE
     Indication: Vomiting
  40. MOVANTIK [Concomitant]
     Active Substance: NALOXEGOL OXALATE
     Indication: Product used for unknown indication
     Route: 048
  41. OXYCODONE [Concomitant]
     Active Substance: OXYCODONE\OXYCODONE HYDROCHLORIDE
     Indication: Pain
     Route: 048
  42. OXYCODONE [Concomitant]
     Active Substance: OXYCODONE\OXYCODONE HYDROCHLORIDE
     Route: 048
  43. COMPAZINE [Concomitant]
     Active Substance: PROCHLORPERAZINE MALEATE
     Indication: Product used for unknown indication
     Route: 048
  44. COMPAZINE [Concomitant]
     Active Substance: PROCHLORPERAZINE MALEATE
     Route: 048
  45. COMPAZINE [Concomitant]
     Active Substance: PROCHLORPERAZINE MALEATE
     Route: 048
  46. VESICARE [Concomitant]
     Active Substance: SOLIFENACIN SUCCINATE
     Indication: Product used for unknown indication
     Route: 065
  47. VESICARE [Concomitant]
     Active Substance: SOLIFENACIN SUCCINATE
     Route: 048
  48. RESTORIL [Concomitant]
     Active Substance: TEMAZEPAM
     Indication: Product used for unknown indication
     Route: 048
  49. RESTORIL [Concomitant]
     Active Substance: TEMAZEPAM
     Route: 048
  50. LUNESTA [Concomitant]
     Active Substance: ESZOPICLONE
     Indication: Product used for unknown indication
     Route: 048
  51. LUNESTA [Concomitant]
     Active Substance: ESZOPICLONE
     Route: 048
  52. PLENVU [Concomitant]
     Active Substance: ASCORBIC ACID\POLYETHYLENE GLYCOL 3350\POTASSIUM CHLORIDE\SODIUM ASCORBATE\SODIUM CHLORIDE\SODIUM SU
     Indication: Product used for unknown indication
     Route: 065
  53. PLENVU [Concomitant]
     Active Substance: ASCORBIC ACID\POLYETHYLENE GLYCOL 3350\POTASSIUM CHLORIDE\SODIUM ASCORBATE\SODIUM CHLORIDE\SODIUM SU
     Route: 048
  54. PLENVU [Concomitant]
     Active Substance: ASCORBIC ACID\POLYETHYLENE GLYCOL 3350\POTASSIUM CHLORIDE\SODIUM ASCORBATE\SODIUM CHLORIDE\SODIUM SU
     Dosage: 140-9-5.2 GRAM PACKET
     Route: 065
  55. NARCAN [Concomitant]
     Active Substance: NALOXONE HYDROCHLORIDE
     Indication: Product used for unknown indication
     Route: 045
  56. NARCAN [Concomitant]
     Active Substance: NALOXONE HYDROCHLORIDE
     Route: 048
  57. FLECTOR [Concomitant]
     Active Substance: DICLOFENAC EPOLAMINE
     Indication: Product used for unknown indication
     Route: 061
  58. MARINOL [Concomitant]
     Active Substance: DRONABINOL
     Indication: Nausea
     Dosage: 2 CAPSULES TWICE DAILY
     Route: 048
  59. MARINOL [Concomitant]
     Active Substance: DRONABINOL
     Indication: Vomiting
     Dosage: 2 CAPSULES TWICE DAILY
     Route: 048
  60. NIZORAL [Concomitant]
     Active Substance: KETOCONAZOLE
     Indication: Product used for unknown indication
     Route: 061
  61. ENULOSE [Concomitant]
     Active Substance: LACTULOSE
     Indication: Constipation
     Dosage: 15 ML 3X DAILY PRN
     Route: 048
  62. K-DUR [Concomitant]
     Active Substance: POTASSIUM CHLORIDE
     Indication: Product used for unknown indication
     Route: 048
  63. K-DUR [Concomitant]
     Active Substance: POTASSIUM CHLORIDE
     Route: 048
  64. PREMARIN [Concomitant]
     Active Substance: ESTROGENS, CONJUGATED
     Indication: Product used for unknown indication
     Route: 067
  65. PREMARIN [Concomitant]
     Active Substance: ESTROGENS, CONJUGATED
     Route: 048
  66. QUVIVIQ [Concomitant]
     Active Substance: DARIDOREXANT
     Indication: Sleep deficit
     Route: 065
  67. VESICARE [Concomitant]
     Active Substance: SOLIFENACIN SUCCINATE
     Indication: Product used for unknown indication
     Route: 048
  68. SUTAB [Concomitant]
     Active Substance: MAGNESIUM SULFATE\POTASSIUM CHLORIDE\SODIUM SULFATE
     Indication: Constipation
     Dosage: 1.479 GRAM - 0.188 GRAM - 0.225 GRAM
     Route: 065
  69. EFFEXOR [Concomitant]
     Active Substance: VENLAFAXINE HYDROCHLORIDE
     Indication: Product used for unknown indication
     Route: 048
  70. LIDODERM [Concomitant]
     Active Substance: LIDOCAINE
     Indication: Pain
     Dosage: 2.5 - 0.025 MG
     Route: 048
  71. LIDODERM [Concomitant]
     Active Substance: LIDOCAINE
     Route: 061
  72. ROBAXIN [Concomitant]
     Active Substance: METHOCARBAMOL
     Indication: Product used for unknown indication
     Route: 048
  73. ROBAXIN [Concomitant]
     Active Substance: METHOCARBAMOL
     Route: 061
  74. LOMOTIL [Concomitant]
     Active Substance: ATROPINE SULFATE\DIPHENOXYLATE HYDROCHLORIDE
     Indication: Diarrhoea
     Dosage: 2.5 - 0.025 MG
     Route: 048
  75. LOMOTIL [Concomitant]
     Active Substance: ATROPINE SULFATE\DIPHENOXYLATE HYDROCHLORIDE
     Route: 061
  76. PROTONIX [Concomitant]
     Active Substance: PANTOPRAZOLE SODIUM
     Indication: Product used for unknown indication
     Route: 048
  77. PROTONIX [Concomitant]
     Active Substance: PANTOPRAZOLE SODIUM
     Route: 061
  78. PROTONIX [Concomitant]
     Active Substance: PANTOPRAZOLE SODIUM
     Dosage: 100,000 UNIT/G
     Route: 061
  79. PROTONIX [Concomitant]
     Active Substance: PANTOPRAZOLE SODIUM
     Route: 048
  80. PROTONIX [Concomitant]
     Active Substance: PANTOPRAZOLE SODIUM
     Route: 048
  81. TYRVAYA [Concomitant]
     Active Substance: VARENICLINE TARTRATE
     Indication: Product used for unknown indication
     Route: 045
  82. TYRVAYA [Concomitant]
     Active Substance: VARENICLINE TARTRATE
     Route: 061
  83. TYRVAYA [Concomitant]
     Active Substance: VARENICLINE TARTRATE
     Dosage: 100,000 UNIT/G
     Route: 061
  84. TYRVAYA [Concomitant]
     Active Substance: VARENICLINE TARTRATE
     Route: 048
  85. TYRVAYA [Concomitant]
     Active Substance: VARENICLINE TARTRATE
     Route: 048
  86. AMBIEN CR [Concomitant]
     Active Substance: ZOLPIDEM TARTRATE
     Indication: Product used for unknown indication
     Route: 048
  87. AMBIEN CR [Concomitant]
     Active Substance: ZOLPIDEM TARTRATE
     Route: 061
  88. AMBIEN CR [Concomitant]
     Active Substance: ZOLPIDEM TARTRATE
     Dosage: 100,000 UNIT/G
     Route: 061
  89. AMBIEN CR [Concomitant]
     Active Substance: ZOLPIDEM TARTRATE
     Route: 048
  90. AMBIEN CR [Concomitant]
     Active Substance: ZOLPIDEM TARTRATE
     Route: 048
  91. ZOFRAN [Concomitant]
     Active Substance: ONDANSETRON HYDROCHLORIDE
     Indication: Product used for unknown indication
     Route: 048
  92. MYCOSTATIN [Concomitant]
     Active Substance: NYSTATIN
     Indication: Product used for unknown indication
     Dosage: 100,000 UNIT/G
     Route: 061

REACTIONS (22)
  - Pneumonia [Recovered/Resolved]
  - Rib fracture [Recovered/Resolved]
  - Pneumothorax traumatic [Recovered/Resolved]
  - Fall [Unknown]
  - Thrombosis [Recovered/Resolved]
  - Chest pain [Recovered/Resolved]
  - Swelling [Recovered/Resolved]
  - Muscle spasms [Unknown]
  - Hand fracture [Unknown]
  - Pulmonary embolism [Unknown]
  - Cytopenia [Unknown]
  - Neutropenia [Unknown]
  - Balance disorder [Unknown]
  - Dizziness [Unknown]
  - Vomiting [Recovered/Resolved]
  - Dyspnoea [Recovered/Resolved]
  - Dry skin [Unknown]
  - Pruritus [Unknown]
  - Haemoglobin abnormal [Recovered/Resolved]
  - Anaemia [Unknown]
  - Venous thrombosis [Unknown]
  - White blood cell count decreased [Unknown]

NARRATIVE: CASE EVENT DATE: 20220826
